FAERS Safety Report 7945945-0 (Version None)
Quarter: 2011Q4

REPORT INFORMATION
  Report Type: 
  Country: None (occurrence: None)
  Receive Date: 20111129
  Receipt Date: 20111124
  Transmission Date: 20120403
  Serious: Yes (Hospitalization, Other)
  Sender: FDA-Public Use
  Company Number: PHHY2011DE102917

PATIENT
  Age: 64 Year
  Sex: Male

DRUGS (8)
  1. PANTOPRAZOLE [Concomitant]
     Indication: PROPHYLAXIS
     Dosage: 40 MG, QD
     Dates: start: 20110911
  2. LEUPROLIDE ACETATE [Concomitant]
  3. ASPIRIN [Concomitant]
     Indication: INTERMITTENT CLAUDICATION
     Dosage: 100 MG, UNK
     Dates: start: 20110521
  4. ERGOCALCIFEROL [Concomitant]
     Indication: PROPHYLAXIS
     Dosage: 1000 IU, UNK
  5. ZOMETA [Suspect]
     Indication: METASTASES TO BONE
     Dosage: 4 MG, 1 IN 1 MONTH
     Route: 042
     Dates: start: 20080520, end: 20110818
  6. CARBARITAXEL [Concomitant]
     Indication: PROSTATE CANCER
     Dosage: UNK UKN, UNK
     Dates: start: 20111021
  7. MDV3100 [Concomitant]
     Indication: PROSTATE CANCER
     Dosage: 160 MG, UNK
     Dates: start: 20101005
  8. MOVIPREP [Concomitant]
     Route: 048

REACTIONS (4)
  - NOCTURIA [None]
  - GOITRE [None]
  - OSTEONECROSIS OF JAW [None]
  - HYPERTHYROIDISM [None]
